FAERS Safety Report 4405846-1 (Version None)
Quarter: 2004Q3

REPORT INFORMATION
  Report Type: 
  Country: None (occurrence: None)
  Receive Date: 20040723
  Receipt Date: 20040113
  Transmission Date: 20050211
  Serious: No
  Sender: FDA-Public Use
  Company Number: US-GLAXOSMITHKLINE-A0493114A

PATIENT
  Age: 63 Year
  Sex: Female

DRUGS (8)
  1. AVANDIA [Suspect]
     Dosage: 8MG PER DAY
     Route: 048
     Dates: end: 20031201
  2. FOSAMAX [Concomitant]
  3. PLAVIX [Concomitant]
  4. NORVASC [Concomitant]
  5. MAVIK [Concomitant]
  6. TOPROL-XL [Concomitant]
  7. DETROL [Concomitant]
  8. PREMARIN [Concomitant]

REACTIONS (2)
  - NAUSEA [None]
  - STOMACH DISCOMFORT [None]
